FAERS Safety Report 6347092-0 (Version None)
Quarter: 2009Q3

REPORT INFORMATION
  Report Type: 
  Country: None (occurrence: None)
  Receive Date: 20090910
  Receipt Date: 20090902
  Transmission Date: 20100115
  Serious: Yes (Death)
  Sender: FDA-Public Use
  Company Number: US-AMGEN-US362761

PATIENT
  Sex: Female

DRUGS (3)
  1. NPLATE [Suspect]
     Indication: IDIOPATHIC THROMBOCYTOPENIC PURPURA
     Route: 065
     Dates: start: 20081002, end: 20081002
  2. CORTICOSTEROIDS [Concomitant]
     Route: 065
     Dates: start: 20080911
  3. DANAZOL [Concomitant]
     Route: 065
     Dates: start: 20080819

REACTIONS (1)
  - DEATH [None]
